FAERS Safety Report 12834323 (Version 1)
Quarter: 2016Q4

REPORT INFORMATION
  Report Type: Report from Study
  Country: None (occurrence: NZ)
  Receive Date: 20161010
  Receipt Date: 20161010
  Transmission Date: 20170207
  Serious: Yes (Other)
  Sender: FDA-Public Use
  Company Number: NZ-ABBVIE-16K-118-1746847-00

PATIENT
  Sex: Male
  Weight: 109 kg

DRUGS (1)
  1. HUMIRA [Suspect]
     Active Substance: ADALIMUMAB
     Indication: ARTHRITIS REACTIVE
     Route: 058
     Dates: end: 20160906

REACTIONS (2)
  - Suicidal ideation [Recovered/Resolved]
  - Weight decreased [Unknown]
